FAERS Safety Report 10664534 (Version 1)
Quarter: 2014Q4

REPORT INFORMATION
  Report Type: Spontaneous
  Country: US (occurrence: US)
  Receive Date: 20141219
  Receipt Date: 20141219
  Transmission Date: 20150529
  Serious: Yes (Other)
  Sender: FDA-Public Use
  Company Number: US-BAYER-2014-185823

PATIENT
  Age: 61 Year
  Sex: Male

DRUGS (2)
  1. KOGENATE FS [Suspect]
     Active Substance: ANTIHEMOPHILIC FACTOR, HUMAN RECOMBINANT
     Indication: FACTOR VIII DEFICIENCY
     Dosage: 6004 UNITS, TIW
     Route: 042
     Dates: start: 20141009
  2. KOGENATE FS [Suspect]
     Active Substance: ANTIHEMOPHILIC FACTOR, HUMAN RECOMBINANT
     Indication: FACTOR VIII DEFICIENCY
     Dosage: 6004 UNITS, PRN
     Route: 042
     Dates: start: 20141009

REACTIONS (1)
  - Haemorrhage [Recovered/Resolved]

NARRATIVE: CASE EVENT DATE: 20141119
